FAERS Safety Report 6015896-X (Version None)
Quarter: 2008Q4

REPORT INFORMATION
  Report Type: 
  Country: None (occurrence: None)
  Receive Date: 20081222
  Receipt Date: 20081216
  Transmission Date: 20090506
  Serious: Yes (Death)
  Sender: FDA-Public Use
  Company Number: B0548193A

PATIENT
  Sex: Male

DRUGS (5)
  1. FLOLAN [Suspect]
     Indication: DRUG USE FOR UNKNOWN INDICATION
     Route: 042
     Dates: start: 20080724
  2. BOSENTAN [Concomitant]
     Dates: start: 20060809
  3. SILDENAFIL CITRATE [Concomitant]
     Dates: start: 20071201
  4. CANDESARTAN [Concomitant]
     Dates: end: 20080801
  5. ATENOLOL [Concomitant]

REACTIONS (11)
  - ABDOMINAL PAIN [None]
  - AGITATION [None]
  - BLOOD PRESSURE DECREASED [None]
  - CARDIAC ARREST [None]
  - CIRCULATORY COLLAPSE [None]
  - DYSPNOEA [None]
  - ERYTHEMA [None]
  - FEELING HOT [None]
  - FLUSHING [None]
  - HEADACHE [None]
  - SYNCOPE [None]
